FAERS Safety Report 6317750-2 (Version None)
Quarter: 2009Q3

REPORT INFORMATION
  Report Type: 
  Country: None (occurrence: None)
  Receive Date: 20090820
  Receipt Date: 20090820
  Transmission Date: 20100115
  Serious: Yes (Other)
  Sender: FDA-Public Use
  Company Number: None

PATIENT
  Sex: Male
  Weight: 16.7831 kg

DRUGS (1)
  1. FOCALIN XR [Suspect]
     Indication: ATTENTION DEFICIT/HYPERACTIVITY DISORDER
     Dosage: 1 CAPSULE -5MG- EVERY MORNING PO
     Route: 048
     Dates: start: 20090813, end: 20090817

REACTIONS (3)
  - DEPRESSED MOOD [None]
  - FEAR [None]
  - SOCIAL AVOIDANT BEHAVIOUR [None]
